FAERS Safety Report 8545050-9 (Version None)
Quarter: 2012Q3

REPORT INFORMATION
  Report Type: 
  Country: None (occurrence: None)
  Receive Date: 20120727
  Receipt Date: 20120723
  Transmission Date: 20120928
  Serious: Yes (Other)
  Sender: FDA-Public Use
  Company Number: US-009507513-1207USA010219

PATIENT

DRUGS (3)
  1. CELEBREX [Suspect]
     Dosage: 200 MG, QD
     Route: 048
  2. MUCOSTA [Concomitant]
     Route: 048
  3. JANUVIA [Suspect]
     Route: 048

REACTIONS (2)
  - MUSCULAR WEAKNESS [None]
  - EYELID PTOSIS [None]
